FAERS Safety Report 12769912 (Version 2)
Quarter: 2016Q4

REPORT INFORMATION
  Report Type: Report from Study
  Country: JP (occurrence: JP)
  Receive Date: 20160922
  Receipt Date: 20161104
  Transmission Date: 20170207
  Serious: Yes (Death, Life-Threatening)
  Sender: FDA-Public Use
  Company Number: JP-AMGEN-JPNSP2016083539

PATIENT
  Age: 74 Year
  Sex: Female

DRUGS (2)
  1. ADRENAL [Concomitant]
     Active Substance: EPINEPHRINE
     Dosage: UNK
     Route: 065
  2. ROMIPLOSTIM [Suspect]
     Active Substance: ROMIPLOSTIM
     Indication: IMMUNE THROMBOCYTOPENIC PURPURA
     Dosage: UNK
     Route: 058

REACTIONS (3)
  - Therapeutic response decreased [Unknown]
  - Cardiac failure [Unknown]
  - Death [Fatal]

NARRATIVE: CASE EVENT DATE: 20160620
